FAERS Safety Report 5631809-4 (Version None)
Quarter: 2008Q1

REPORT INFORMATION
  Report Type: 
  Country: None (occurrence: None)
  Receive Date: 20080220
  Receipt Date: 20080212
  Transmission Date: 20080703
  Serious: Yes (Other)
  Sender: FDA-Public Use
  Company Number: PHFR2008GB00860

PATIENT
  Age: 38 Year
  Sex: Male

DRUGS (5)
  1. CLOZARIL [Suspect]
     Indication: SCHIZOPHRENIA
     Dosage: ONE WEEK'S SUPPLY
     Route: 048
     Dates: start: 20080206
  2. CLOZARIL [Suspect]
     Route: 048
     Dates: start: 20060406
  3. LORAZEPAM [Suspect]
     Route: 065
  4. AMISULPRIDE [Suspect]
     Route: 065
  5. ALCOHOL [Suspect]
     Route: 065

REACTIONS (2)
  - HANGOVER [None]
  - OVERDOSE [None]
